FAERS Safety Report 8998345 (Version 2)
Quarter: 2013Q1

REPORT INFORMATION
  Report Type: Spontaneous
  Country: DE (occurrence: DE)
  Receive Date: 20130105
  Receipt Date: 20130121
  Transmission Date: 20140127
  Serious: Yes (Other)
  Sender: FDA-Public Use
  Company Number: DE-JNJFOC-20130100434

PATIENT
  Age: 47 Year
  Sex: Female
  Weight: 91 kg

DRUGS (9)
  1. NICORETTE [Suspect]
     Indication: SMOKING CESSATION THERAPY
     Route: 002
     Dates: start: 20121229, end: 20121230
  2. RISPERIDON [Concomitant]
     Route: 065
  3. UNSPECIFIED [Concomitant]
     Route: 048
  4. XELEVIA [Concomitant]
     Route: 065
  5. DOSTINEX [Concomitant]
     Route: 065
  6. OLMETEC [Concomitant]
     Route: 065
  7. SIMVASTATIN [Concomitant]
     Route: 048
  8. METFORMIN [Concomitant]
     Route: 065
  9. DICLOFENAC [Concomitant]
     Route: 065

REACTIONS (4)
  - Depression [Recovered/Resolved]
  - Nervousness [Recovered/Resolved]
  - Impatience [Recovered/Resolved]
  - Aggression [Recovered/Resolved]
